FAERS Safety Report 7530525-1 (Version None)
Quarter: 2011Q2

REPORT INFORMATION
  Report Type: 
  Country: None (occurrence: None)
  Receive Date: 20110607
  Receipt Date: 20110531
  Transmission Date: 20111010
  Serious: Yes (Other)
  Sender: FDA-Public Use
  Company Number: US-ABBOTT-11P-163-0729885-00

PATIENT
  Sex: Female
  Weight: 75 kg

DRUGS (1)
  1. HUMIRA [Suspect]
     Indication: RHEUMATOID ARTHRITIS
     Route: 058
     Dates: start: 20110430, end: 20110523

REACTIONS (4)
  - URTICARIA [None]
  - ERYTHEMA [None]
  - RASH MACULAR [None]
  - HYPERSENSITIVITY [None]
